FAERS Safety Report 9726067 (Version 1)
Quarter: 2013Q4

REPORT INFORMATION
  Report Type: Spontaneous
  Country: PT (occurrence: None)
  Receive Date: 20131129
  Receipt Date: 20131129
  Transmission Date: 20140711
  Serious: Yes (Death)
  Sender: FDA-Public Use
  Company Number: SYM-2013-13238

PATIENT
  Sex: 0

DRUGS (4)
  1. FLUOROURACIL (FLUOROURACIL) (FLUOROURACIL) [Suspect]
     Indication: SQUAMOUS CELL CARCINOMA OF HEAD AND NECK
  2. CISPLATIN (CISPLATIN) (CISPLATIN) [Suspect]
     Indication: SQUAMOUS CELL CARCINOMA OF HEAD AND NECK
     Dosage: 75 MG/M2, EVERY CYCLE
  3. CISPLATIN (CISPLATIN) (CISPLATIN) [Suspect]
     Dosage: 75 MG/M2, EVERY CYCLE
  4. DOCETAXEL (DOCETAXEL) (DOCETAXEL) [Suspect]
     Indication: SQUAMOUS CELL CARCINOMA OF HEAD AND NECK
     Dosage: 75 MG/M2, EVERY CYCLE

REACTIONS (1)
  - Death [None]
